FAERS Safety Report 13448825 (Version 1)
Quarter: 2017Q2

REPORT INFORMATION
  Report Type: Spontaneous
  Country: US (occurrence: US)
  Receive Date: 20170417
  Receipt Date: 20170417
  Transmission Date: 20170830
  Serious: No
  Sender: FDA-Public Use
  Company Number: US-SHIONOGI, INC-2016001047

PATIENT
  Sex: Female

DRUGS (4)
  1. NEURONTIN [Concomitant]
     Active Substance: GABAPENTIN
     Indication: SPINAL CORD INJURY
     Dosage: UNK
     Route: 065
     Dates: start: 2006
  2. TRAMADOL. [Concomitant]
     Active Substance: TRAMADOL
     Indication: PAIN
     Dosage: UNK
     Route: 065
  3. OSPHENA [Suspect]
     Active Substance: OSPEMIFENE
     Indication: OFF LABEL USE
  4. OSPHENA [Suspect]
     Active Substance: OSPEMIFENE
     Indication: VULVOVAGINAL BURNING SENSATION
     Dosage: 60 MG, QD WITH A MEAL
     Route: 048
     Dates: start: 20161017

REACTIONS (3)
  - Off label use [Unknown]
  - Vulvovaginal burning sensation [Not Recovered/Not Resolved]
  - Drug ineffective for unapproved indication [Unknown]
